FAERS Safety Report 12597241 (Version 1)
Quarter: 2016Q3

REPORT INFORMATION
  Report Type: Spontaneous
  Country: US (occurrence: US)
  Receive Date: 20160727
  Receipt Date: 20160727
  Transmission Date: 20161109
  Serious: No
  Sender: FDA-Public Use
  Company Number: US-BAYER-2016-145866

PATIENT
  Age: 61 Year
  Sex: Female
  Weight: 64.85 kg

DRUGS (6)
  1. CLARITIN [Suspect]
     Active Substance: LORATADINE
     Indication: SNEEZING
  2. ACCOLATE [Concomitant]
     Active Substance: ZAFIRLUKAST
  3. CLARITIN [Suspect]
     Active Substance: LORATADINE
     Indication: EYE PRURITUS
     Dosage: 1 DF, QD
     Route: 048
     Dates: start: 2014, end: 2014
  4. CLARITIN [Suspect]
     Active Substance: LORATADINE
     Indication: PERENNIAL ALLERGY
  5. FLONASE [Concomitant]
     Active Substance: FLUTICASONE PROPIONATE
  6. ADVAIR HFA [Concomitant]
     Active Substance: FLUTICASONE PROPIONATE\SALMETEROL XINAFOATE

REACTIONS (1)
  - Drug ineffective [None]

NARRATIVE: CASE EVENT DATE: 2014
